FAERS Safety Report 21056115 (Version 1)
Quarter: 2022Q3

REPORT INFORMATION
  Report Type: Spontaneous
  Country: KR (occurrence: None)
  Receive Date: 20220708
  Receipt Date: 20220708
  Transmission Date: 20221027
  Serious: Yes (Other)
  Sender: FDA-Public Use
  Company Number: KR-Merck Healthcare KGaA-9335098

PATIENT
  Age: 57 Year
  Sex: Female

DRUGS (2)
  1. METFORMIN HYDROCHLORIDE [Suspect]
     Active Substance: METFORMIN HYDROCHLORIDE
     Indication: Product used for unknown indication
     Route: 048
     Dates: start: 20220530, end: 20220602
  2. RINGERS SOLUTION [Suspect]
     Active Substance: CALCIUM CHLORIDE\POTASSIUM CHLORIDE\SODIUM CHLORIDE
     Indication: Product used for unknown indication

REACTIONS (5)
  - Syncope [Unknown]
  - Dizziness [Unknown]
  - Chest discomfort [Unknown]
  - Blood glucose increased [Unknown]
  - Vomiting [Unknown]
